FAERS Safety Report 10189830 (Version 1)
Quarter: 2014Q2

REPORT INFORMATION
  Report Type: Spontaneous
  Country: US (occurrence: US)
  Receive Date: 20140522
  Receipt Date: 20140522
  Transmission Date: 20141212
  Serious: Yes (Life-Threatening, Hospitalization)
  Sender: FDA-Public Use
  Company Number: US-SANOFI-AVENTIS-2013SA060480

PATIENT
  Age: 72 Year
  Sex: Female

DRUGS (18)
  1. LANTUS [Suspect]
     Indication: DIABETES MELLITUS
     Dosage: DOSE:45 UNIT(S)
     Route: 058
     Dates: start: 1995, end: 20120611
  2. BLINDED THERAPY [Suspect]
     Indication: CARDIOVASCULAR EVENT PROPHYLAXIS
     Route: 048
     Dates: start: 20101005
  3. ASPIRIN [Concomitant]
     Dates: start: 20100918
  4. COREG [Concomitant]
     Dates: start: 20100918
  5. LISINOPRIL [Concomitant]
     Dates: start: 20090224
  6. NITROSTAT [Concomitant]
     Dates: start: 20100918
  7. ZOCOR [Concomitant]
     Dates: start: 20100918
  8. AMLODIPINE [Concomitant]
     Dates: start: 20100923
  9. NOVOLIN N [Concomitant]
     Dates: start: 1995, end: 20120306
  10. NOVOLIN N [Concomitant]
     Dates: start: 20120306, end: 20120705
  11. LIPITOR [Concomitant]
     Dates: start: 20100830
  12. HYDROCHLOROTHIAZIDE [Concomitant]
     Dates: start: 20100428
  13. MECLIZINE [Concomitant]
     Dates: start: 20101005
  14. FUROSEMIDE [Concomitant]
     Dates: start: 20101005
  15. POTASSIUM CHLORIDE [Concomitant]
     Dates: start: 20101005
  16. RANOLAZINE HYDROCHLORIDE [Concomitant]
     Dates: start: 20101209
  17. GLIPIZIDE [Concomitant]
     Dates: start: 2013
  18. KEFLEX [Concomitant]
     Dates: start: 20100803, end: 20100813

REACTIONS (2)
  - Hypoglycaemia [Recovered/Resolved]
  - Hypoglycaemia [Recovered/Resolved]
